FAERS Safety Report 22688268 (Version 7)
Quarter: 2024Q1

REPORT INFORMATION
  Report Type: Spontaneous
  Country: FR (occurrence: FR)
  Receive Date: 20230710
  Receipt Date: 20240102
  Transmission Date: 20240409
  Serious: Yes (Death, Life-Threatening, Hospitalization, Disabling, Other)
  Sender: FDA-Public Use
  Company Number: FR-009507513-1907FRA004683

PATIENT
  Age: 71 Year
  Sex: Male
  Weight: 77 kg

DRUGS (27)
  1. OLAPARIB [Suspect]
     Active Substance: OLAPARIB
     Indication: Prostate cancer metastatic
     Dosage: 300 MILLIGRAM, Q12H
     Route: 048
     Dates: start: 20190620, end: 20190705
  2. OLAPARIB [Suspect]
     Active Substance: OLAPARIB
     Indication: Hormone-refractory prostate cancer
     Dosage: 250 MILLIGRAM, Q12H
     Route: 048
     Dates: start: 20190711, end: 20190712
  3. OLAPARIB [Suspect]
     Active Substance: OLAPARIB
     Indication: Hormone-dependent prostate cancer
  4. PEMBROLIZUMAB [Suspect]
     Active Substance: PEMBROLIZUMAB
     Indication: Prostate cancer metastatic
     Dosage: 200 MILLIGRAM, Q3W
     Route: 042
     Dates: start: 20190620, end: 20190620
  5. PEMBROLIZUMAB [Suspect]
     Active Substance: PEMBROLIZUMAB
     Indication: Hormone-refractory prostate cancer
     Dosage: 200 MILLIGRAM, Q3W
     Route: 042
     Dates: start: 20190711, end: 20190711
  6. PEMBROLIZUMAB [Suspect]
     Active Substance: PEMBROLIZUMAB
     Indication: Hormone-dependent prostate cancer
  7. POTASSIUM CHLORIDE [Concomitant]
     Active Substance: POTASSIUM CHLORIDE
     Dates: start: 201907, end: 201908
  8. KARDEGIC [Concomitant]
     Active Substance: ASPIRIN DL-LYSINE
     Indication: Myocardial infarction
     Dosage: 75 MILLIGRAM, QD
     Route: 048
     Dates: start: 201805
  9. COVERAM [Concomitant]
     Active Substance: AMLODIPINE\PERINDOPRIL
     Indication: Anticoagulant therapy
     Dosage: UNK, QD
     Route: 048
     Dates: start: 20190601, end: 201907
  10. POLYETHYLENE GLYCOL, UNSPECIFIED [Concomitant]
     Active Substance: POLYETHYLENE GLYCOL, UNSPECIFIED
     Dates: start: 20190523
  11. METOPIMAZINE [Concomitant]
     Active Substance: METOPIMAZINE
     Dates: start: 20190620, end: 20190708
  12. OMEPRAZOLE [Concomitant]
     Active Substance: OMEPRAZOLE
     Indication: Gastrooesophageal reflux disease
     Dosage: 10 MILLIGRAM, QD
     Route: 048
     Dates: start: 20190523
  13. ATORVASTATIN CALCIUM [Concomitant]
     Active Substance: ATORVASTATIN CALCIUM
     Indication: Blood cholesterol increased
     Dosage: 40 MILLIGRAM, QD
     Route: 048
     Dates: start: 201805
  14. ATORVASTATIN CALCIUM [Concomitant]
     Active Substance: ATORVASTATIN CALCIUM
     Dosage: 40 MILLIGRAM, QD
     Route: 048
     Dates: start: 201805, end: 201907
  15. POLYETHYLENE GLYCOL 3350\POTASSIUM CHLORIDE\SODIUM BICARBONATE\SODIUM [Concomitant]
     Active Substance: POLYETHYLENE GLYCOL 3350\POTASSIUM CHLORIDE\SODIUM BICARBONATE\SODIUM CHLORIDE
     Indication: Constipation prophylaxis
     Dosage: DAILY
     Route: 048
  16. POLYETHYLENE GLYCOLS [Concomitant]
     Active Substance: POLYETHYLENE GLYCOLS
     Dosage: 13.12 GRAM, QD
     Route: 048
     Dates: start: 20190523
  17. CALCIUM [Concomitant]
     Active Substance: CALCIUM
     Indication: Prostate cancer
     Dosage: TOTAL DAILY DOSE 500 MILLIGRAM
     Route: 048
     Dates: start: 201708
  18. AMLODIPINE [Concomitant]
     Active Substance: AMLODIPINE BESYLATE
     Dates: start: 201907
  19. OMEPRAZOLE [Concomitant]
     Active Substance: OMEPRAZOLE
     Dosage: DAILY
     Route: 048
  20. OMEPRAZOLE [Concomitant]
     Active Substance: OMEPRAZOLE
     Dosage: DAILY
     Route: 047
  21. PERINDOPRIL [Concomitant]
     Active Substance: PERINDOPRIL
     Dates: start: 201907, end: 201907
  22. KETOPROFEN [Concomitant]
     Active Substance: KETOPROFEN
     Indication: Inflammation
     Dosage: 100 MILLIGRAM
     Route: 048
     Dates: start: 20190605
  23. DENOSUMAB [Concomitant]
     Active Substance: DENOSUMAB
     Indication: Metastases to bone
     Dosage: 120 MILLIGRAM, QM
     Route: 058
     Dates: start: 201708
  24. CHOLECALCIFEROL [Concomitant]
     Active Substance: CHOLECALCIFEROL
     Indication: Prostate cancer
     Dosage: TOTAL DAILY DOSE 440 MG
     Route: 048
     Dates: start: 201708
  25. DOLIPRANE [Concomitant]
     Active Substance: ACETAMINOPHEN
     Dosage: 100 MILLIGRAM
     Route: 048
     Dates: start: 20190612
  26. GOSERELIN [Concomitant]
     Active Substance: GOSERELIN
     Indication: Prostate cancer
     Dosage: TOTAL DAILY DOSE 10.8 MG, FREQUENCY: OTHER
     Route: 058
     Dates: start: 201711
  27. FENTANYL [Concomitant]
     Active Substance: FENTANYL\FENTANYL CITRATE
     Indication: Pain
     Dosage: 50 MICROGRAM DAILY, PRN
     Route: 003
     Dates: start: 201701

REACTIONS (33)
  - Malignant neoplasm progression [Fatal]
  - Myositis [Recovered/Resolved with Sequelae]
  - Amyotrophy [Unknown]
  - Urethral obstruction [Unknown]
  - Bradycardia [Unknown]
  - Myocarditis [Unknown]
  - Pyrexia [Unknown]
  - Blood test abnormal [Unknown]
  - Eyelid ptosis [Unknown]
  - Gait inability [Unknown]
  - Malaise [Unknown]
  - Cachexia [Unknown]
  - Neuropathy peripheral [Unknown]
  - Toxicity to various agents [Recovered/Resolved with Sequelae]
  - Musculoskeletal toxicity [Unknown]
  - Cardiac failure chronic [Unknown]
  - Nausea [Unknown]
  - Vomiting [Recovered/Resolved]
  - Cystitis radiation [Unknown]
  - Weight decreased [Unknown]
  - Mental disorder [Unknown]
  - Haematuria [Recovered/Resolved]
  - Bone pain [Unknown]
  - Home care [Unknown]
  - Hypoaesthesia [Unknown]
  - Osteoarthritis [Unknown]
  - Bone pain [Unknown]
  - Haematuria [Recovered/Resolved]
  - Myopathy [Unknown]
  - Somatic dysfunction [Unknown]
  - Injury [Unknown]
  - Asthenia [Recovered/Resolved]
  - Fatigue [Unknown]

NARRATIVE: CASE EVENT DATE: 20190101
